FAERS Safety Report 26129769 (Version 1)
Quarter: 2025Q4

REPORT INFORMATION
  Report Type: Spontaneous
  Country: GB (occurrence: GB)
  Receive Date: 20251208
  Receipt Date: 20251208
  Transmission Date: 20260118
  Serious: Yes (Other)
  Sender: STRIDES
  Company Number: GB-STRIDES PHARMA UK LTD.-2025SP015197

PATIENT

DRUGS (1)
  1. PREDNISOLONE [Suspect]
     Active Substance: PREDNISOLONE
     Indication: Inflammation
     Dosage: UNK
     Route: 065

REACTIONS (2)
  - Withdrawal syndrome [Unknown]
  - Off label use [Unknown]
